FAERS Safety Report 9150541 (Version 1)
Quarter: 2013Q1

REPORT INFORMATION
  Report Type: Spontaneous
  Country: US (occurrence: None)
  Receive Date: 20130305
  Receipt Date: 20130305
  Transmission Date: 20140127
  Serious: Yes (Disabling, Other)
  Sender: FDA-Public Use
  Company Number: None

PATIENT
  Age: 45 Year
  Sex: Male
  Weight: 81.65 kg

DRUGS (1)
  1. LEVOFLOXACIN [Suspect]
     Dates: start: 20130129, end: 20130201

REACTIONS (3)
  - Arthralgia [None]
  - Tendon rupture [None]
  - Fear [None]
